FAERS Safety Report 24727958 (Version 2)
Quarter: 2024Q4

REPORT INFORMATION
  Report Type: Spontaneous
  Country: US (occurrence: US)
  Receive Date: 20241212
  Receipt Date: 20241215
  Transmission Date: 20250114
  Serious: No
  Sender: NOVARTIS
  Company Number: US-002147023-NVSC2024US236509

PATIENT
  Age: 28 Year
  Sex: Female

DRUGS (1)
  1. COSENTYX [Suspect]
     Active Substance: SECUKINUMAB
     Indication: Product used for unknown indication
     Dosage: 300 MG (WEEKLY, INJECTION)
     Route: 065

REACTIONS (3)
  - Accidental exposure to product [Unknown]
  - Device connection issue [Unknown]
  - Needle issue [Unknown]

NARRATIVE: CASE EVENT DATE: 20241208
